FAERS Safety Report 7440735-X (Version None)
Quarter: 2011Q2

REPORT INFORMATION
  Report Type: 
  Country: None (occurrence: None)
  Receive Date: 20110427
  Receipt Date: 20110413
  Transmission Date: 20111010
  Serious: Yes (Hospitalization, Other)
  Sender: FDA-Public Use
  Company Number: US-PURDUE-USA-2011-0066740

PATIENT
  Sex: Male

DRUGS (1)
  1. OXYCONTIN (NDA 22-272) [Suspect]
     Indication: PAIN
     Dosage: 60 MG, BID
     Route: 048
     Dates: start: 20100901

REACTIONS (5)
  - CONVULSION [None]
  - MALAISE [None]
  - NERVOUS SYSTEM DISORDER [None]
  - OSTEOMYELITIS [None]
  - INADEQUATE ANALGESIA [None]
